FAERS Safety Report 12320292 (Version 2)
Quarter: 2016Q2

REPORT INFORMATION
  Report Type: Report from Study
  Country: US (occurrence: US)
  Receive Date: 20160501
  Receipt Date: 20160509
  Transmission Date: 20160815
  Serious: No
  Sender: FDA-Public Use
  Company Number: PHEH2016US010537

PATIENT
  Age: 44 Year
  Sex: Male

DRUGS (1)
  1. COSENTYX [Suspect]
     Active Substance: SECUKINUMAB
     Indication: PSORIASIS
     Dosage: 300 MG, QW
     Route: 058
     Dates: start: 20160414

REACTIONS (5)
  - Hypersensitivity [Unknown]
  - Malaise [Unknown]
  - Sneezing [Unknown]
  - Inappropriate schedule of drug administration [Unknown]
  - Cough [Unknown]

NARRATIVE: CASE EVENT DATE: 20160420
